FAERS Safety Report 11480621 (Version 4)
Quarter: 2016Q3

REPORT INFORMATION
  Report Type: Report from Study
  Country: JP (occurrence: JP)
  Receive Date: 20150909
  Receipt Date: 20160810
  Transmission Date: 20161109
  Serious: Yes (Other)
  Sender: FDA-Public Use
  Company Number: JP-ASTELLAS-2011JP006888

PATIENT
  Age: 51 Year
  Sex: Female

DRUGS (76)
  1. TACROLIMUS. [Suspect]
     Active Substance: TACROLIMUS
     Indication: LUPUS NEPHRITIS
     Route: 048
     Dates: start: 20100107
  2. PREDNISOLONE. [Concomitant]
     Active Substance: PREDNISOLONE
     Route: 048
     Dates: start: 20110610, end: 20121213
  3. NORVASC [Concomitant]
     Active Substance: AMLODIPINE BESYLATE
     Indication: PRODUCT USED FOR UNKNOWN INDICATION
     Route: 048
  4. BAYASPIRIN [Concomitant]
     Active Substance: ASPIRIN
     Indication: PRODUCT USED FOR UNKNOWN INDICATION
     Route: 048
  5. CARDENALIN [Concomitant]
     Active Substance: DOXAZOSIN MESYLATE
     Indication: PRODUCT USED FOR UNKNOWN INDICATION
     Route: 048
  6. BANAN [Concomitant]
     Active Substance: CEFPODOXIME PROXETIL
     Indication: PHARYNGITIS
     Route: 048
     Dates: start: 20110106, end: 20110928
  7. DEPAS [Concomitant]
     Active Substance: ETIZOLAM
     Indication: INSOMNIA
     Dosage: 0.5 MG, ONCE DAILY
     Route: 048
     Dates: start: 20110203
  8. ALLEGRA [Concomitant]
     Active Substance: FEXOFENADINE HYDROCHLORIDE
     Indication: PROPHYLAXIS
     Route: 048
     Dates: start: 20130513, end: 20130722
  9. HUSTAZOL                           /00398402/ [Concomitant]
     Indication: PHARYNGITIS
     Route: 048
     Dates: start: 20131205, end: 20131211
  10. PL [Concomitant]
     Active Substance: ACETAMINOPHEN\CAFFEINE\PROMETHAZINE\SALICYLAMIDE
     Route: 048
     Dates: start: 20150323, end: 20150402
  11. CLARITH [Concomitant]
     Active Substance: CLARITHROMYCIN
     Route: 048
     Dates: start: 20140612, end: 20140618
  12. SP TROCHE [Concomitant]
     Active Substance: DEQUALINIUM CHLORIDE
     Route: 048
     Dates: start: 20140410, end: 20140416
  13. CRAVIT [Concomitant]
     Active Substance: LEVOFLOXACIN
     Indication: UPPER RESPIRATORY TRACT INFLAMMATION
     Route: 048
     Dates: start: 20141204, end: 20141206
  14. ASTOMIN [Concomitant]
     Active Substance: DIMEMORFAN
     Route: 048
     Dates: start: 20150305, end: 20150312
  15. PREDNISOLONE. [Concomitant]
     Active Substance: PREDNISOLONE
     Route: 048
     Dates: start: 20130704
  16. MAGMITT [Concomitant]
     Active Substance: MAGNESIUM OXIDE
     Indication: CONSTIPATION
     Route: 048
     Dates: start: 20101202, end: 20110202
  17. URSO [Concomitant]
     Active Substance: URSODIOL
     Indication: PRODUCT USED FOR UNKNOWN INDICATION
     Route: 048
     Dates: start: 20110609
  18. BUSCOPAN [Concomitant]
     Active Substance: BUTYLSCOPOLAMINE BROMIDE
     Indication: CHOLECYSTITIS CHRONIC
     Route: 048
     Dates: start: 20130109, end: 20140210
  19. DIOVAN [Concomitant]
     Active Substance: VALSARTAN
     Indication: PRODUCT USED FOR UNKNOWN INDICATION
     Route: 048
  20. NAUZELIN [Concomitant]
     Active Substance: DOMPERIDONE
     Indication: CHOLELITHIASIS
     Dosage: UNK UNK, UNKNOWN FREQ.
     Route: 048
     Dates: start: 201301
  21. NAUZELIN [Concomitant]
     Active Substance: DOMPERIDONE
     Indication: CHOLECYSTITIS CHRONIC
     Route: 048
     Dates: start: 20140127, end: 20140210
  22. GRACEVIT [Concomitant]
     Active Substance: SITAFLOXACIN
     Indication: UPPER RESPIRATORY TRACT INFLAMMATION
     Route: 048
     Dates: start: 20150323, end: 20150326
  23. NOVORAPID [Concomitant]
     Active Substance: INSULIN ASPART
     Indication: PRODUCT USED FOR UNKNOWN INDICATION
     Dosage: UNK UNK, UNKNOWN FREQ.
     Route: 058
     Dates: end: 20100401
  24. ALLEGRA [Concomitant]
     Active Substance: FEXOFENADINE HYDROCHLORIDE
     Indication: URTICARIA
     Route: 048
     Dates: start: 20111006, end: 20121118
  25. PRIMPERAN [Concomitant]
     Active Substance: METOCLOPRAMIDE HYDROCHLORIDE
     Indication: PRODUCT USED FOR UNKNOWN INDICATION
     Route: 048
     Dates: start: 20120105, end: 20130307
  26. PL [Concomitant]
     Active Substance: ACETAMINOPHEN\CAFFEINE\PROMETHAZINE\SALICYLAMIDE
     Route: 048
     Dates: start: 20150507, end: 20150514
  27. CLARITH [Concomitant]
     Active Substance: CLARITHROMYCIN
     Indication: PHARYNGITIS
     Route: 048
     Dates: start: 20131205, end: 20131211
  28. SP TROCHE [Concomitant]
     Active Substance: DEQUALINIUM CHLORIDE
     Indication: UPPER RESPIRATORY TRACT INFLAMMATION
     Route: 048
     Dates: start: 20131205, end: 20131211
  29. CYMBALTA [Concomitant]
     Active Substance: DULOXETINE HYDROCHLORIDE
     Indication: PAIN IN EXTREMITY
     Route: 048
     Dates: start: 20140612, end: 20141105
  30. CRAVIT [Concomitant]
     Active Substance: LEVOFLOXACIN
     Indication: CHOLECYSTITIS
     Route: 048
     Dates: start: 20130103, end: 20130107
  31. MAGLAX [Concomitant]
     Active Substance: MAGNESIUM OXIDE
     Indication: PROPHYLAXIS
     Route: 048
     Dates: start: 20140807, end: 20140816
  32. PREDNISOLONE. [Concomitant]
     Active Substance: PREDNISOLONE
     Route: 048
     Dates: start: 20121214, end: 20130206
  33. WARFARIN [Concomitant]
     Active Substance: WARFARIN
     Indication: LUPUS NEPHRITIS
     Route: 048
     Dates: end: 20120509
  34. PARIET [Concomitant]
     Active Substance: RABEPRAZOLE SODIUM
     Route: 048
  35. FOSAMAC [Concomitant]
     Active Substance: ALENDRONATE SODIUM
     Indication: PROPHYLAXIS
     Route: 048
  36. HUSTAZOL                           /00398402/ [Concomitant]
     Indication: UPPER RESPIRATORY TRACT INFLAMMATION
     Route: 048
     Dates: start: 20110922, end: 20111214
  37. HUSTAZOL                           /00398402/ [Concomitant]
     Indication: COUGH
     Route: 048
     Dates: start: 20140410, end: 20140416
  38. CLARITH [Concomitant]
     Active Substance: CLARITHROMYCIN
     Indication: BRONCHITIS
     Route: 048
     Dates: start: 20140109, end: 20140115
  39. CRAVIT [Concomitant]
     Active Substance: LEVOFLOXACIN
     Indication: CHOLECYSTITIS CHRONIC
     Route: 048
     Dates: start: 20130109, end: 20130113
  40. CRAVIT [Concomitant]
     Active Substance: LEVOFLOXACIN
     Route: 048
     Dates: start: 20150305, end: 20150308
  41. LYRICA [Concomitant]
     Active Substance: PREGABALIN
     Indication: ARTHRALGIA
     Route: 048
     Dates: start: 20150701, end: 20150722
  42. GASTER [Concomitant]
     Active Substance: FAMOTIDINE
     Indication: PROPHYLAXIS
     Route: 048
     Dates: end: 20110831
  43. PREDNISOLONE. [Concomitant]
     Active Substance: PREDNISOLONE
     Route: 048
     Dates: start: 20130207, end: 20130703
  44. WARFARIN [Concomitant]
     Active Substance: WARFARIN
     Route: 048
  45. LOXONIN [Concomitant]
     Active Substance: LOXOPROFEN SODIUM
     Indication: BACK PAIN
     Route: 048
     Dates: start: 20141106, end: 20150204
  46. BUSCOPAN [Concomitant]
     Active Substance: BUTYLSCOPOLAMINE BROMIDE
     Indication: CHOLELITHIASIS
     Route: 048
     Dates: start: 20111208
  47. HUSTAZOL                           /00398402/ [Concomitant]
     Indication: BRONCHITIS
     Route: 048
     Dates: start: 20140109, end: 20140115
  48. PL [Concomitant]
     Active Substance: ACETAMINOPHEN\CAFFEINE\PROMETHAZINE\SALICYLAMIDE
     Route: 048
     Dates: start: 20140109, end: 20140115
  49. CLARITH [Concomitant]
     Active Substance: CLARITHROMYCIN
     Indication: UPPER RESPIRATORY TRACT INFLAMMATION
     Route: 048
     Dates: start: 20111006, end: 20111016
  50. CLARITH [Concomitant]
     Active Substance: CLARITHROMYCIN
     Route: 048
     Dates: start: 20140714, end: 20140720
  51. CLARITH [Concomitant]
     Active Substance: CLARITHROMYCIN
     Route: 048
     Dates: start: 20140807, end: 20140813
  52. SP TROCHE [Concomitant]
     Active Substance: DEQUALINIUM CHLORIDE
     Route: 048
     Dates: start: 20140109, end: 20140115
  53. ASTOMIN [Concomitant]
     Active Substance: DIMEMORFAN
     Indication: UPPER RESPIRATORY TRACT INFLAMMATION
     Route: 048
     Dates: start: 20141204, end: 20141211
  54. ASTOMIN [Concomitant]
     Active Substance: DIMEMORFAN
     Route: 048
     Dates: start: 20150323, end: 20150402
  55. ALLEGRA [Concomitant]
     Active Substance: FEXOFENADINE HYDROCHLORIDE
     Route: 048
     Dates: start: 20130723
  56. BUSCOPAN [Concomitant]
     Active Substance: BUTYLSCOPOLAMINE BROMIDE
     Route: 048
     Dates: start: 20141020, end: 20141102
  57. METHYCOBAL [Concomitant]
     Active Substance: METHYLCOBALAMIN
     Indication: PRODUCT USED FOR UNKNOWN INDICATION
     Route: 048
  58. PL [Concomitant]
     Active Substance: ACETAMINOPHEN\CAFFEINE\PROMETHAZINE\SALICYLAMIDE
     Indication: UPPER RESPIRATORY TRACT INFLAMMATION
     Route: 048
     Dates: start: 20131205, end: 20131211
  59. PL [Concomitant]
     Active Substance: ACETAMINOPHEN\CAFFEINE\PROMETHAZINE\SALICYLAMIDE
     Route: 048
     Dates: start: 20141204, end: 20141211
  60. ASTOMIN [Concomitant]
     Active Substance: DIMEMORFAN
     Route: 048
     Dates: start: 20150507, end: 20150514
  61. PREDNISOLONE. [Concomitant]
     Active Substance: PREDNISOLONE
     Indication: LUPUS NEPHRITIS
     Route: 048
     Dates: end: 20110609
  62. MERCAZOLE [Concomitant]
     Active Substance: CARBIMAZOLE
     Indication: PRODUCT USED FOR UNKNOWN INDICATION
     Route: 048
  63. MUCOSTA [Concomitant]
     Active Substance: REBAMIPIDE
     Indication: PROPHYLAXIS
     Route: 048
  64. GLUFAST [Concomitant]
     Active Substance: MITIGLINIDE
     Indication: PRODUCT USED FOR UNKNOWN INDICATION
     Route: 048
     Dates: end: 20100630
  65. LOXONIN [Concomitant]
     Active Substance: LOXOPROFEN SODIUM
     Route: 048
     Dates: start: 20150402
  66. PARIET [Concomitant]
     Active Substance: RABEPRAZOLE SODIUM
     Indication: PROPHYLAXIS
     Route: 048
     Dates: start: 20110609, end: 20120404
  67. HUSTAZOL                           /00398402/ [Concomitant]
     Route: 048
     Dates: start: 20140508, end: 20140514
  68. CLARITH [Concomitant]
     Active Substance: CLARITHROMYCIN
     Route: 048
     Dates: start: 20140410, end: 20140416
  69. FOSAMAC [Concomitant]
     Active Substance: ALENDRONATE SODIUM
     Indication: PROPHYLAXIS
     Route: 048
     Dates: start: 20100107
  70. TALION [Concomitant]
     Active Substance: BEPOTASTINE
     Indication: URTICARIA
     Route: 048
     Dates: start: 20100401, end: 20110803
  71. LOXONIN [Concomitant]
     Active Substance: LOXOPROFEN SODIUM
     Indication: HEADACHE
     Route: 048
     Dates: start: 20110106
  72. BANAN [Concomitant]
     Active Substance: CEFPODOXIME PROXETIL
     Indication: BRONCHITIS
  73. CHOLEBINE [Concomitant]
     Active Substance: COLESTILAN CHLORIDE
     Indication: PRODUCT USED FOR UNKNOWN INDICATION
     Route: 048
  74. NAUZELIN [Concomitant]
     Active Substance: DOMPERIDONE
     Route: 048
     Dates: start: 20141020, end: 20141102
  75. PL [Concomitant]
     Active Substance: ACETAMINOPHEN\CAFFEINE\PROMETHAZINE\SALICYLAMIDE
     Route: 048
     Dates: start: 20140410, end: 20140416
  76. MAGNESIUM OXIDE. [Concomitant]
     Active Substance: MAGNESIUM OXIDE
     Indication: PROPHYLAXIS
     Route: 048
     Dates: start: 20140904

REACTIONS (16)
  - Upper respiratory tract inflammation [Recovering/Resolving]
  - Diabetes mellitus [Recovering/Resolving]
  - Cough [Recovered/Resolved]
  - Cholelithiasis [Not Recovered/Not Resolved]
  - Headache [Not Recovered/Not Resolved]
  - Hepatic steatosis [Not Recovered/Not Resolved]
  - Pharyngitis [Recovered/Resolved]
  - Cholecystitis infective [Recovering/Resolving]
  - Cholecystitis chronic [Recovered/Resolved]
  - Bronchitis [Recovered/Resolved]
  - Urticaria [Recovering/Resolving]
  - Pain in extremity [Not Recovered/Not Resolved]
  - Constipation [Recovering/Resolving]
  - Insomnia [Not Recovered/Not Resolved]
  - Back pain [Recovering/Resolving]
  - Arthralgia [Recovering/Resolving]

NARRATIVE: CASE EVENT DATE: 20100301
